FAERS Safety Report 8183629-7 (Version None)
Quarter: 2012Q1

REPORT INFORMATION
  Report Type: 
  Country: None (occurrence: None)
  Receive Date: 20120130
  Receipt Date: 20100202
  Transmission Date: 20120608
  Serious: Yes (Other)
  Sender: FDA-Public Use
  Company Number: 006124

PATIENT
  Age: 30 Year
  Sex: Male

DRUGS (1)
  1. KEPPRA [Suspect]
     Indication: PRODUCT USED FOR UNKNOWN INDICATION
     Dosage: 500 MG 6X/DAY

REACTIONS (1)
  - SUICIDAL IDEATION [None]
